FAERS Safety Report 8405137-8 (Version None)
Quarter: 2012Q2

REPORT INFORMATION
  Report Type: 
  Country: None (occurrence: None)
  Receive Date: 20120602
  Receipt Date: 20120601
  Transmission Date: 20120825
  Serious: Yes (Death)
  Sender: FDA-Public Use
  Company Number: NO-BAYER-2012-036267

PATIENT
  Age: 77 Year
  Sex: Female

DRUGS (8)
  1. ASPIRIN [Suspect]
     Indication: ACUTE MYOCARDIAL INFARCTION
     Dosage: 300 MG, UNK
     Route: 048
     Dates: start: 20120407, end: 20120407
  2. ALENDRONATE SODIUM [Concomitant]
     Indication: OSTEOPOROSIS
     Route: 048
  3. TITRALAC [Concomitant]
     Dosage: 700 MG, TID
     Route: 048
  4. INTEGRILIN [Interacting]
     Indication: ACUTE MYOCARDIAL INFARCTION
     Dosage: UNK
     Route: 041
     Dates: start: 20120407, end: 20120408
  5. PLAVIX [Interacting]
     Indication: ACUTE MYOCARDIAL INFARCTION
     Dosage: 600 MG, UNK
     Route: 048
     Dates: start: 20120407, end: 20120407
  6. HEPARIN [Interacting]
     Indication: ACUTE MYOCARDIAL INFARCTION
     Dosage: 5000 IU, UNK
     Dates: start: 20120407, end: 20120407
  7. CALCIGRAN FORTE [Concomitant]
     Indication: OSTEOPOROSIS
     Route: 048
  8. CALCIGRAN FORTE [Concomitant]

REACTIONS (2)
  - DEATH [None]
  - PULMONARY HAEMORRHAGE [None]
